FAERS Safety Report 10259732 (Version 1)
Quarter: 2014Q2

REPORT INFORMATION
  Report Type: Spontaneous
  Country: US (occurrence: US)
  Receive Date: 20140625
  Receipt Date: 20140625
  Transmission Date: 20141212
  Serious: No
  Sender: FDA-Public Use
  Company Number: US-ASTELLAS-2014US002264

PATIENT
  Age: 49 Year
  Sex: Female
  Weight: 59 kg

DRUGS (5)
  1. VESICARE [Suspect]
     Indication: PRODUCT USED FOR UNKNOWN INDICATION
     Route: 048
  2. ASTELIN                            /00085801/ [Concomitant]
     Indication: HYPERSENSITIVITY
     Route: 045
  3. PULMICORT [Concomitant]
     Indication: HYPERSENSITIVITY
     Route: 065
  4. LEVOXYL [Concomitant]
     Indication: HYPOTHYROIDISM
     Dosage: 100 UG, ONCE DAILY
     Route: 048
  5. LEXAPRO [Concomitant]
     Indication: ANXIETY
     Route: 048

REACTIONS (2)
  - Gastroenteritis viral [Unknown]
  - Influenza [Unknown]
